FAERS Safety Report 16812178 (Version 2)
Quarter: 2019Q3

REPORT INFORMATION
  Report Type: Spontaneous
  Country: JP (occurrence: JP)
  Receive Date: 20190916
  Receipt Date: 20190930
  Transmission Date: 20191005
  Serious: Yes (Other)
  Sender: FDA-Public Use
  Company Number: PHJP2019JP012161

PATIENT
  Age: 63 Year
  Sex: Male

DRUGS (21)
  1. VALPROATE SODIUM. [Concomitant]
     Active Substance: VALPROATE SODIUM
     Indication: DELUSIONAL DISORDER, PERSECUTORY TYPE
     Dosage: 600 MG, QD
     Route: 065
  2. VALPROATE SODIUM. [Concomitant]
     Active Substance: VALPROATE SODIUM
     Indication: AGITATION
  3. ARIPIPRAZOLE. [Concomitant]
     Active Substance: ARIPIPRAZOLE
     Indication: DELUSIONAL DISORDER, PERSECUTORY TYPE
     Dosage: 24 MG, QD
     Route: 048
  4. QUETIAPINE. [Concomitant]
     Active Substance: QUETIAPINE
     Indication: DELUSIONAL DISORDER, PERSECUTORY TYPE
     Dosage: 50 MG, QD
     Route: 065
  5. ARIPIPRAZOLE. [Concomitant]
     Active Substance: ARIPIPRAZOLE
     Indication: AGGRESSION
     Dosage: 400 MG, QD
     Route: 048
  6. OLANZAPINE. [Concomitant]
     Active Substance: OLANZAPINE
     Indication: DELUSIONAL DISORDER, PERSECUTORY TYPE
     Dosage: 600 MG, QD
     Route: 065
  7. QUETIAPINE. [Concomitant]
     Active Substance: QUETIAPINE
     Indication: AGGRESSION
  8. TEGRETOL [Interacting]
     Active Substance: CARBAMAZEPINE
     Indication: AGGRESSION
     Dosage: 900 MG, QD
     Route: 065
  9. PALIPERIDONE. [Concomitant]
     Active Substance: PALIPERIDONE
     Indication: DELUSIONAL DISORDER, PERSECUTORY TYPE
     Dosage: UNK
     Route: 065
  10. RISPERIDONE. [Interacting]
     Active Substance: RISPERIDONE
     Indication: AGGRESSION
     Dosage: 5 MG, QD
     Route: 065
  11. PALIPERIDONE. [Concomitant]
     Active Substance: PALIPERIDONE
     Indication: AGGRESSION
  12. OLANZAPINE. [Concomitant]
     Active Substance: OLANZAPINE
     Indication: AGGRESSION
     Dosage: 400 MG, QD
     Route: 065
  13. OLANZAPINE. [Concomitant]
     Active Substance: OLANZAPINE
     Indication: AGITATION
  14. ARIPIPRAZOLE. [Concomitant]
     Active Substance: ARIPIPRAZOLE
     Indication: AGITATION
  15. QUETIAPINE. [Concomitant]
     Active Substance: QUETIAPINE
     Indication: AGITATION
  16. RISPERIDONE. [Interacting]
     Active Substance: RISPERIDONE
     Indication: DELUSIONAL DISORDER, PERSECUTORY TYPE
     Dosage: 4 MG, QD
     Route: 065
  17. RISPERIDONE. [Interacting]
     Active Substance: RISPERIDONE
     Indication: AGITATION
  18. PALIPERIDONE. [Concomitant]
     Active Substance: PALIPERIDONE
     Indication: AGITATION
  19. VALPROATE SODIUM. [Concomitant]
     Active Substance: VALPROATE SODIUM
     Indication: AGGRESSION
  20. TEGRETOL [Suspect]
     Active Substance: CARBAMAZEPINE
     Indication: DELUSIONAL DISORDER, PERSECUTORY TYPE
     Dosage: 500 MG, QD
     Route: 065
  21. TEGRETOL [Interacting]
     Active Substance: CARBAMAZEPINE
     Indication: AGITATION

REACTIONS (3)
  - Drug interaction [Unknown]
  - Catatonia [Unknown]
  - Therapeutic product effect decreased [Unknown]
